FAERS Safety Report 4466773-7 (Version None)
Quarter: 2004Q3

REPORT INFORMATION
  Report Type: 
  Country: None (occurrence: None)
  Receive Date: 20040930
  Receipt Date: 20040920
  Transmission Date: 20050211
  Serious: No
  Sender: FDA-Public Use
  Company Number: 04H-163-0274060-00

PATIENT
  Sex: 0

DRUGS (1)
  1. SODIUM CHLORIDE [Suspect]
     Indication: COLON POLYPECTOMY
     Dosage: INJECTION

REACTIONS (2)
  - METASTASES TO LIVER [None]
  - PROCEDURAL COMPLICATION [None]
